FAERS Safety Report 8336501-3 (Version None)
Quarter: 2012Q2

REPORT INFORMATION
  Report Type: 
  Country: None (occurrence: None)
  Receive Date: 20120504
  Receipt Date: 20120430
  Transmission Date: 20120825
  Serious: Yes (Death)
  Sender: FDA-Public Use
  Company Number: FR-SANOFI-AVENTIS-2012SA030138

PATIENT
  Age: 71 Year
  Sex: Female

DRUGS (10)
  1. LEVOTHYROXINE SODIUM [Concomitant]
     Dosage: STRENGTH; 125 MCG
     Route: 048
  2. LOVENOX [Suspect]
     Indication: THROMBOSIS PROPHYLAXIS
     Route: 058
     Dates: start: 20120304, end: 20120319
  3. ATARAX [Concomitant]
  4. POTASSIUM CHLORIDE [Concomitant]
     Route: 048
  5. LASIX [Concomitant]
     Dosage: STRENGTH; 40 MG
     Route: 048
  6. BISOPROLOL FUMARATE [Concomitant]
     Dosage: STRENGTH; 5 MG
     Route: 048
  7. FERROUS SULFATE TAB [Concomitant]
  8. ORGARAN [Suspect]
     Indication: THROMBOSIS PROPHYLAXIS
     Route: 042
     Dates: start: 20120320, end: 20120322
  9. PERINDOPRIL ERBUMINE [Concomitant]
  10. CORDARONE [Concomitant]
     Dosage: STRENGTH; 200 MG
     Route: 048

REACTIONS (6)
  - HEPARIN-INDUCED THROMBOCYTOPENIA [None]
  - RENAL FAILURE ACUTE [None]
  - SHOCK HAEMORRHAGIC [None]
  - INJECTION SITE HAEMATOMA [None]
  - SUBILEUS [None]
  - INTRA-ABDOMINAL HAEMATOMA [None]
